FAERS Safety Report 26162599 (Version 1)
Quarter: 2025Q4

REPORT INFORMATION
  Report Type: Spontaneous
  Country: US (occurrence: US)
  Receive Date: 20251216
  Receipt Date: 20251216
  Transmission Date: 20260118
  Serious: Yes (Other)
  Sender: MYLAN
  Company Number: US-MYLANLABS-2025M1105574

PATIENT
  Age: 28 Year
  Sex: Female

DRUGS (4)
  1. METHIMAZOLE [Suspect]
     Active Substance: METHIMAZOLE
     Indication: Graves^ disease
     Dosage: 20 MILLIGRAM, QD
  2. METHIMAZOLE [Suspect]
     Active Substance: METHIMAZOLE
     Dosage: 20 MILLIGRAM, QD
     Route: 065
  3. METHIMAZOLE [Suspect]
     Active Substance: METHIMAZOLE
     Dosage: 20 MILLIGRAM, QD
     Route: 065
  4. METHIMAZOLE [Suspect]
     Active Substance: METHIMAZOLE
     Dosage: 20 MILLIGRAM, QD

REACTIONS (1)
  - Hypertransaminasaemia [Unknown]
